FAERS Safety Report 14105316 (Version 2)
Quarter: 2017Q4

REPORT INFORMATION
  Report Type: Report from Study
  Country: US (occurrence: DE)
  Receive Date: 20171018
  Receipt Date: 20171031
  Transmission Date: 20180321
  Serious: Yes (Death, Life-Threatening, Hospitalization, Other)
  Sender: FDA-Public Use
  Company Number: US-SUNOVION-2017SUN004451

PATIENT

DRUGS (11)
  1. TORASEMID AL [Concomitant]
     Active Substance: TORSEMIDE
     Dosage: UNK
  2. HCT AL [Concomitant]
     Dosage: UNK
  3. JANUMET [Concomitant]
     Active Substance: METFORMIN HYDROCHLORIDE\SITAGLIPTIN PHOSPHATE
     Dosage: UNK
  4. BISOPROLOL COMP [Concomitant]
     Dosage: UNK
  5. ACTRAPID [Concomitant]
     Active Substance: INSULIN HUMAN
     Dosage: UNK
  6. NITROLINGUAL [Concomitant]
     Active Substance: NITROGLYCERIN
     Dosage: UNK
  7. PROCORALAN [Concomitant]
     Active Substance: IVABRADINE
     Dosage: UNK
  8. SIMVABETA [Concomitant]
     Active Substance: SIMVASTATIN
     Dosage: UNK
  9. INDACATEROL AND GLYCOPYRROLATE [Suspect]
     Active Substance: GLYCOPYRROLATE\INDACATEROL MALEATE
     Indication: CHRONIC OBSTRUCTIVE PULMONARY DISEASE
     Dosage: 1 DF, QD (85 UG/ 43 UG)
     Route: 055
     Dates: start: 20140523
  10. PANTOPRAZOL AL [Concomitant]
     Active Substance: PANTOPRAZOLE SODIUM
     Dosage: UNK
  11. RAMIPRIL AL [Concomitant]
     Dosage: UNK

REACTIONS (4)
  - Death [Fatal]
  - Dyspnoea at rest [Not Recovered/Not Resolved]
  - Chronic obstructive pulmonary disease [Not Recovered/Not Resolved]
  - Dyspnoea exertional [Not Recovered/Not Resolved]

NARRATIVE: CASE EVENT DATE: 20150101
